FAERS Safety Report 5996008-5 (Version None)
Quarter: 2008Q4

REPORT INFORMATION
  Report Type: 
  Country: None (occurrence: None)
  Receive Date: 20081212
  Receipt Date: 20081007
  Transmission Date: 20090506
  Serious: No
  Sender: FDA-Public Use
  Company Number: US-ABBOTT-08P-163-0480325-00

PATIENT
  Sex: Female
  Weight: 75.364 kg

DRUGS (7)
  1. HUMIRA [Suspect]
     Indication: RHEUMATOID ARTHRITIS
     Route: 058
  2. DULOXETINE HYDROCHLORIDE [Concomitant]
     Indication: ANXIETY
     Route: 048
  3. NAPROXEN SODIUM [Concomitant]
     Indication: PAIN
     Route: 048
  4. OMEPRAZOLE SODIUM [Concomitant]
     Indication: GASTRIC DISORDER
     Route: 048
  5. ATORVASTATIN CALCIUM [Concomitant]
     Indication: BLOOD CHOLESTEROL
     Route: 048
  6. FLEXERIL [Concomitant]
     Indication: DRUG USE FOR UNKNOWN INDICATION
     Route: 048
  7. ^EQUAETE EXTRA STRENGTH^ [Concomitant]
     Indication: PAIN
     Route: 048

REACTIONS (3)
  - CONFUSIONAL STATE [None]
  - DIZZINESS [None]
  - MEMORY IMPAIRMENT [None]
